FAERS Safety Report 20979125 (Version 3)
Quarter: 2022Q3

REPORT INFORMATION
  Report Type: Spontaneous
  Country: US (occurrence: US)
  Receive Date: 20220619
  Receipt Date: 20220804
  Transmission Date: 20221027
  Serious: Yes (Other)
  Sender: FDA-Public Use
  Company Number: US-BAUSCH-BL-2022-014307

PATIENT
  Sex: Female

DRUGS (1)
  1. DIASTAT ACUDIAL [Suspect]
     Active Substance: DIAZEPAM
     Indication: Seizure
     Dosage: PATIENT HAD BEEN USING IT FOR OVER 5 YEARS AGO
     Route: 054

REACTIONS (10)
  - Device malfunction [Unknown]
  - Dyspnoea [Unknown]
  - Injury [Unknown]
  - Feeling abnormal [Unknown]
  - Product preparation issue [Unknown]
  - Device issue [Unknown]
  - Device breakage [Unknown]
  - Device operational issue [Unknown]
  - Product availability issue [Unknown]
  - Product use issue [Unknown]

NARRATIVE: CASE EVENT DATE: 20220601
